FAERS Safety Report 17804200 (Version 1)
Quarter: 2020Q2

REPORT INFORMATION
  Report Type: Spontaneous
  Country: US (occurrence: US)
  Receive Date: 20200519
  Receipt Date: 20200519
  Transmission Date: 20200714
  Serious: Yes (Hospitalization)
  Sender: FDA-Public Use
  Company Number: US-GLAXOSMITHKLINE-US2020083386

PATIENT
  Age: 77 Year
  Sex: Male

DRUGS (1)
  1. VENTOLIN HFA [Suspect]
     Active Substance: ALBUTEROL SULFATE
     Indication: PRODUCT USED FOR UNKNOWN INDICATION
     Dosage: UNK
     Route: 065

REACTIONS (7)
  - Hernia hiatus repair [Not Recovered/Not Resolved]
  - Gastrointestinal tube insertion [Unknown]
  - Oesophageal disorder [Not Recovered/Not Resolved]
  - Gallbladder disorder [Recovered/Resolved]
  - Oesophageal operation [Unknown]
  - Hiatus hernia [Unknown]
  - Wrong technique in product usage process [Unknown]

NARRATIVE: CASE EVENT DATE: 201905
